FAERS Safety Report 7114689-X (Version None)
Quarter: 2010Q4

REPORT INFORMATION
  Report Type: 
  Country: None (occurrence: None)
  Receive Date: 20101122
  Receipt Date: 20101109
  Transmission Date: 20110411
  Serious: Yes (Hospitalization)
  Sender: FDA-Public Use
  Company Number: DE-BIOGENIDEC-2010BI039233

PATIENT
  Age: 56 Year
  Sex: Female
  Weight: 60 kg

DRUGS (1)
  1. AVONEX [Suspect]
     Indication: RELAPSING-REMITTING MULTIPLE SCLEROSIS
     Route: 030
     Dates: start: 20010301, end: 20100201

REACTIONS (5)
  - GAIT DISTURBANCE [None]
  - INJECTION SITE RASH [None]
  - LIVER FUNCTION TEST ABNORMAL [None]
  - PHOBIA [None]
  - RENAL FUNCTION TEST ABNORMAL [None]
